FAERS Safety Report 23348670 (Version 1)
Quarter: 2023Q4

REPORT INFORMATION
  Report Type: Report from Study
  Country: US (occurrence: US)
  Receive Date: 20231229
  Receipt Date: 20231229
  Transmission Date: 20240109
  Serious: Yes (Hospitalization)
  Sender: FDA-Public Use
  Company Number: US-ABBVIE-5558852

PATIENT
  Sex: Female

DRUGS (1)
  1. SKYRIZI [Suspect]
     Active Substance: RISANKIZUMAB-RZAA
     Indication: Crohn^s disease
     Route: 058
     Dates: start: 20230919

REACTIONS (4)
  - Formication [Recovered/Resolved]
  - Ulcer [Unknown]
  - Varices oesophageal [Unknown]
  - Haematemesis [Unknown]

NARRATIVE: CASE EVENT DATE: 20230101
